FAERS Safety Report 13230213 (Version 4)
Quarter: 2017Q3

REPORT INFORMATION
  Report Type: Report from Study
  Country: JP (occurrence: JP)
  Receive Date: 20170214
  Receipt Date: 20170921
  Transmission Date: 20171127
  Serious: Yes (Other)
  Sender: FDA-Public Use
  Company Number: JP-VIFOR (INTERNATIONAL) INC.-VIT-2017-01215

PATIENT
  Age: 55 Year
  Sex: Male
  Weight: 88.7 kg

DRUGS (17)
  1. KALIAID PLUS [Concomitant]
     Route: 048
  2. NEXIUM [Concomitant]
     Active Substance: ESOMEPRAZOLE MAGNESIUM
     Route: 048
  3. ALLELOCK [Concomitant]
     Active Substance: OLOPATADINE HYDROCHLORIDE
     Route: 048
  4. ASPENON [Concomitant]
     Active Substance: APRINDINE HYDROCHLORIDE
     Route: 048
  5. NESP [Suspect]
     Active Substance: DARBEPOETIN ALFA
     Dates: start: 20161114, end: 20161121
  6. REGPARA [Concomitant]
     Active Substance: CINACALCET HYDROCHLORIDE
     Route: 048
  7. NESP [Suspect]
     Active Substance: DARBEPOETIN ALFA
     Indication: PRODUCT USED FOR UNKNOWN INDICATION
     Dates: end: 20161003
  8. CALTAN-OD [Concomitant]
     Indication: HYPERPHOSPHATAEMIA
     Route: 048
  9. ROCALTROL [Concomitant]
     Active Substance: CALCITRIOL
  10. ROCALTROL [Concomitant]
     Active Substance: CALCITRIOL
  11. NESP [Suspect]
     Active Substance: DARBEPOETIN ALFA
     Dates: start: 20161010, end: 20161108
  12. ROCALTROL [Concomitant]
     Active Substance: CALCITRIOL
  13. SENNOSIDE A+B [Concomitant]
     Active Substance: SENNOSIDES A AND B
  14. VELPHORO [Suspect]
     Active Substance: FERRIC OXYHYDROXIDE
     Indication: HYPERPHOSPHATAEMIA
     Route: 048
     Dates: start: 20160905, end: 20170205
  15. NESP [Suspect]
     Active Substance: DARBEPOETIN ALFA
     Dates: start: 20161128, end: 20161212
  16. LENDORMIN D [Concomitant]
     Active Substance: BROTIZOLAM
     Route: 048
  17. ROCALTROL [Concomitant]
     Active Substance: CALCITRIOL

REACTIONS (2)
  - Haematocrit increased [Recovering/Resolving]
  - Haemoglobinaemia [Recovering/Resolving]

NARRATIVE: CASE EVENT DATE: 20161003
